FAERS Safety Report 6270708-4 (Version None)
Quarter: 2009Q3

REPORT INFORMATION
  Report Type: 
  Country: None (occurrence: None)
  Receive Date: 20090714
  Receipt Date: 20090629
  Transmission Date: 20100115
  Serious: Yes (Hospitalization)
  Sender: FDA-Public Use
  Company Number: 2009008350

PATIENT
  Age: 76 Year
  Sex: Female

DRUGS (1)
  1. TREANDA [Suspect]
     Indication: B-CELL SMALL LYMPHOCYTIC LYMPHOMA RECURRENT
     Dosage: (130 MG/M2), INTRAVENOUS
     Route: 042
     Dates: start: 20090430

REACTIONS (2)
  - PEMPHIGUS [None]
  - SUPERINFECTION [None]
